FAERS Safety Report 18011461 (Version 1)
Quarter: 2020Q3

REPORT INFORMATION
  Report Type: Report from Study
  Country: None (occurrence: BR)
  Receive Date: 20200712
  Receipt Date: 20200712
  Transmission Date: 20201103
  Serious: Yes (Other)
  Sender: FDA-Public Use
  Company Number: BR-ABBVIE-20K-020-3477052-00

PATIENT
  Age: 54 Year
  Sex: Female
  Weight: 65 kg

DRUGS (1)
  1. HUMIRA [Suspect]
     Active Substance: ADALIMUMAB
     Indication: RHEUMATOID ARTHRITIS
     Route: 058

REACTIONS (14)
  - Malaise [Unknown]
  - Feeling hot [Not Recovered/Not Resolved]
  - Insomnia [Unknown]
  - Anxiety [Unknown]
  - Peripheral swelling [Not Recovered/Not Resolved]
  - Pain in extremity [Not Recovered/Not Resolved]
  - Suspected COVID-19 [Recovered/Resolved]
  - Gait inability [Unknown]
  - Burning sensation [Not Recovered/Not Resolved]
  - Influenza [Recovered/Resolved]
  - Medical device site swelling [Not Recovered/Not Resolved]
  - Hypertension [Recovered/Resolved]
  - Fall [Unknown]
  - Burning sensation [Unknown]

NARRATIVE: CASE EVENT DATE: 201907
